FAERS Safety Report 8169071-3 (Version None)
Quarter: 2012Q1

REPORT INFORMATION
  Report Type: 
  Country: None (occurrence: None)
  Receive Date: 20120227
  Receipt Date: 20120218
  Transmission Date: 20120608
  Serious: Yes (Hospitalization)
  Sender: FDA-Public Use
  Company Number: US-ABBOTT-12P-163-0906914-00

PATIENT
  Sex: Female
  Weight: 54.48 kg

DRUGS (4)
  1. HUMIRA [Suspect]
     Dates: start: 20111201
  2. CIPRO [Concomitant]
     Indication: CROHN'S DISEASE
  3. ZOLOFT [Concomitant]
     Indication: DEPRESSION
  4. HUMIRA [Suspect]
     Indication: CROHN'S DISEASE
     Dates: start: 20080101, end: 20090101

REACTIONS (6)
  - DRUG INEFFECTIVE [None]
  - GASTROINTESTINAL ANASTOMOTIC LEAK [None]
  - POST PROCEDURAL COMPLICATION [None]
  - CROHN'S DISEASE [None]
  - ACNE CYSTIC [None]
  - COLOSTOMY [None]
